FAERS Safety Report 5158095-6 (Version None)
Quarter: 2006Q4

REPORT INFORMATION
  Report Type: 
  Country: None (occurrence: None)
  Receive Date: 20061117
  Receipt Date: 20061106
  Transmission Date: 20070319
  Serious: Yes (Other)
  Sender: FDA-Public Use
  Company Number: 2006122848

PATIENT
  Age: 55 Year
  Sex: Female

DRUGS (3)
  1. SOLU-MEDROL [Suspect]
     Dosage: 7.5 MG
  2. IMURAN [Suspect]
     Dosage: ORAL
     Route: 048
  3. BREDININ (MIZORIBINE) [Suspect]
     Dosage: (DAILY), ORAL
     Route: 048

REACTIONS (3)
  - BONE DENSITY DECREASED [None]
  - FRACTURE NONUNION [None]
  - SPINAL COMPRESSION FRACTURE [None]
